FAERS Safety Report 8379447-7 (Version None)
Quarter: 2012Q2

REPORT INFORMATION
  Report Type: 
  Country: None (occurrence: None)
  Receive Date: 20120523
  Receipt Date: 20120521
  Transmission Date: 20120825
  Serious: No
  Sender: FDA-Public Use
  Company Number: US-PFIZER INC-2012111476

PATIENT
  Sex: Male
  Weight: 63.492 kg

DRUGS (2)
  1. TIKOSYN [Suspect]
     Indication: ARRHYTHMIA
     Dosage: 500 UG, 2X/DAY
  2. TIKOSYN [Suspect]
     Indication: ATRIAL FIBRILLATION

REACTIONS (1)
  - BRONCHITIS [None]
